FAERS Safety Report 6894863-8 (Version None)
Quarter: 2010Q3

REPORT INFORMATION
  Report Type: 
  Country: None (occurrence: None)
  Receive Date: 20100730
  Receipt Date: 20100730
  Transmission Date: 20110219
  Serious: No
  Sender: FDA-Public Use
  Company Number: None

PATIENT
  Age: 50 Year
  Sex: Female
  Weight: 81.6475 kg

DRUGS (1)
  1. ACTONEL [Suspect]
     Indication: OSTEOPENIA
     Dosage: 150 MG TABLET 1 X PER MONTH ORALLY
     Route: 048
     Dates: start: 20100713

REACTIONS (4)
  - EYE PAIN [None]
  - FOOD POISONING [None]
  - INFLUENZA LIKE ILLNESS [None]
  - INSOMNIA [None]
